FAERS Safety Report 9922802 (Version 1)
Quarter: 2014Q1

REPORT INFORMATION
  Report Type: Spontaneous
  Country: US (occurrence: US)
  Receive Date: 20140225
  Receipt Date: 20140225
  Transmission Date: 20141002
  Serious: Yes (Death)
  Sender: FDA-Public Use
  Company Number: US-ACTAVIS-2013-24839

PATIENT
  Sex: Female

DRUGS (6)
  1. PREDNISOLONE (WATSON LABORATORIES) [Suspect]
     Indication: LYMPHOMA
     Dosage: UNK UNK, UNKNOWN
     Route: 048
  2. ZEVALIN [Suspect]
     Indication: LYMPHOMA
     Dosage: 3.2 MG/2 ML, SINGLE
     Route: 042
     Dates: start: 2010, end: 2010
  3. RITUXIMAB [Suspect]
     Indication: LYMPHOMA
     Route: 042
  4. CYCLOPHOSPHAMIDE [Suspect]
     Indication: LYMPHOMA
     Dosage: UNK, UNKNOWN
     Route: 042
  5. DOXORUBICIN [Suspect]
     Indication: LYMPHOMA
     Dosage: UNK, UNKNOWN
     Route: 042
  6. VINCRISTINE /00078802/ [Suspect]
     Indication: LYMPHOMA
     Dosage: UNK, UNKNOWN
     Route: 042

REACTIONS (1)
  - Progressive multifocal leukoencephalopathy [Fatal]
